FAERS Safety Report 9833794 (Version 5)
Quarter: 2014Q2

REPORT INFORMATION
  Report Type: Spontaneous
  Country: US (occurrence: US)
  Receive Date: 20140122
  Receipt Date: 20140508
  Transmission Date: 20141212
  Serious: No
  Sender: FDA-Public Use
  Company Number: US-BIOGENIDEC-2014BI004771

PATIENT
  Age: 49 Year
  Sex: Male
  Weight: 90 kg

DRUGS (4)
  1. TECFIDERA [Suspect]
     Indication: RELAPSING-REMITTING MULTIPLE SCLEROSIS
     Route: 048
     Dates: start: 201312
  2. AMPYRA ER [Concomitant]
     Indication: GAIT DISTURBANCE
     Route: 048
     Dates: end: 20140120
  3. AMPYRA ER [Concomitant]
     Indication: GAIT DISTURBANCE
     Route: 048
     Dates: end: 20140120
  4. ASPIRIN [Concomitant]
     Indication: PRODUCT USED FOR UNKNOWN INDICATION

REACTIONS (12)
  - Drug interaction [Unknown]
  - Muscle spasticity [Recovered/Resolved]
  - Anxiety [Recovered/Resolved]
  - Insomnia [Recovered/Resolved]
  - Cold sweat [Unknown]
  - Sleep disorder [Not Recovered/Not Resolved]
  - Muscular weakness [Recovered/Resolved]
  - Adverse drug reaction [Unknown]
  - Initial insomnia [Recovered/Resolved]
  - Poor quality sleep [Recovered/Resolved]
  - Gait disturbance [Not Recovered/Not Resolved]
  - Flushing [Not Recovered/Not Resolved]
